FAERS Safety Report 12065134 (Version 2)
Quarter: 2017Q1

REPORT INFORMATION
  Report Type: Spontaneous
  Country: US (occurrence: US)
  Receive Date: 20160210
  Receipt Date: 20170209
  Transmission Date: 20170428
  Serious: No
  Sender: FDA-Public Use
  Company Number: US-ALLERGAN-1513826US

PATIENT
  Age: 47 Year
  Sex: Female
  Weight: 44.22 kg

DRUGS (6)
  1. BOTOX [Suspect]
     Active Substance: ONABOTULINUMTOXINA
     Indication: OCCIPITAL NEURALGIA
     Dosage: 200 UNITS, SINGLE
     Route: 030
     Dates: start: 20141226, end: 20141226
  2. BACLOFEN. [Concomitant]
     Active Substance: BACLOFEN
  3. MELOXICAM. [Concomitant]
     Active Substance: MELOXICAM
     Indication: MUSCLE RELAXANT THERAPY
  4. GABAPENTIN. [Concomitant]
     Active Substance: GABAPENTIN
  5. BOTOX [Suspect]
     Active Substance: ONABOTULINUMTOXINA
     Indication: TORTICOLLIS
  6. TRAMADOL. [Concomitant]
     Active Substance: TRAMADOL
     Indication: PRODUCT USED FOR UNKNOWN INDICATION

REACTIONS (13)
  - Nausea [Recovering/Resolving]
  - Speech disorder [Recovering/Resolving]
  - Dysphonia [Recovering/Resolving]
  - Infrequent bowel movements [Recovering/Resolving]
  - Dyspnoea [Recovering/Resolving]
  - Throat tightness [Recovering/Resolving]
  - Dysphagia [Recovering/Resolving]
  - Weight decreased [Not Recovered/Not Resolved]
  - Choking [Recovered/Resolved]
  - Off label use [Unknown]
  - Cough [Recovering/Resolving]
  - Urinary retention [Recovering/Resolving]
  - Vomiting [Recovering/Resolving]

NARRATIVE: CASE EVENT DATE: 20141230
